FAERS Safety Report 5876343-1 (Version None)
Quarter: 2008Q3

REPORT INFORMATION
  Report Type: 
  Country: None (occurrence: None)
  Receive Date: 20080909
  Receipt Date: 20080909
  Transmission Date: 20090109
  Serious: Yes (Other)
  Sender: FDA-Public Use
  Company Number: None

PATIENT
  Age: 28 Year
  Sex: Female
  Weight: 61.2356 kg

DRUGS (1)
  1. MIRENA [Suspect]
     Indication: CONTRACEPTION

REACTIONS (6)
  - ACNE [None]
  - ANORGASMIA [None]
  - ARTHRALGIA [None]
  - FATIGUE [None]
  - LOSS OF LIBIDO [None]
  - MOOD SWINGS [None]
